FAERS Safety Report 10069038 (Version 1)
Quarter: 2014Q2

REPORT INFORMATION
  Report Type: Spontaneous
  Country: US (occurrence: US)
  Receive Date: 20140409
  Receipt Date: 20140409
  Transmission Date: 20141212
  Serious: Yes (Hospitalization)
  Sender: FDA-Public Use
  Company Number: US-B.I. PHARMACEUTICALS,INC./RIDGEFIELD-2014-BI-15143BP

PATIENT
  Age: 63 Year
  Sex: Male

DRUGS (8)
  1. PRADAXA [Suspect]
     Indication: ATRIAL FIBRILLATION
     Dosage: 300 MG
     Route: 048
     Dates: start: 201208, end: 201402
  2. PRADAXA [Suspect]
     Dosage: 300 MG
     Route: 048
     Dates: start: 20140329
  3. DILTIAZEM [Concomitant]
     Dosage: 180 MG
     Route: 048
  4. PEPCID [Concomitant]
     Indication: DYSPEPSIA
     Dosage: 40 MG
     Route: 048
  5. LASIX [Concomitant]
     Indication: FLUID RETENTION
     Dosage: 80 MG
     Route: 048
  6. SPIRONOLACTONE [Concomitant]
     Indication: HYPERTENSION
     Dosage: 50 MG
     Route: 048
  7. LEVOTHYROXINE [Concomitant]
     Indication: HYPOTHYROIDISM
     Dosage: 50 MCG
     Route: 048
  8. VITAMIN B COMPLEX [Concomitant]
     Indication: SUPPLEMENTATION THERAPY
     Dosage: 1 ANZ
     Route: 048

REACTIONS (2)
  - Contusion [Recovered/Resolved]
  - Musculoskeletal pain [Not Recovered/Not Resolved]
